FAERS Safety Report 8223674-6 (Version None)
Quarter: 2012Q1

REPORT INFORMATION
  Report Type: 
  Country: None (occurrence: None)
  Receive Date: 20120316
  Receipt Date: 20120308
  Transmission Date: 20120608
  Serious: Yes (Hospitalization)
  Sender: FDA-Public Use
  Company Number: COL_11176_2012

PATIENT
  Sex: Female

DRUGS (3)
  1. COLGATE TRIPLE ACTION TOOTHPASTE [Suspect]
     Indication: DENTAL CARIES
     Dosage: (APPLIED TO BRUSH/ A TOTAL OF FOUR TIMES/ ORAL)
     Route: 048
     Dates: start: 20120301, end: 20120306
  2. CORTISONE ACETATE [Concomitant]
  3. BACTROBAN [Concomitant]

REACTIONS (3)
  - HEADACHE [None]
  - RESPIRATORY DISORDER [None]
  - SWELLING FACE [None]
